FAERS Safety Report 8405839-3 (Version None)
Quarter: 2012Q2

REPORT INFORMATION
  Report Type: 
  Country: None (occurrence: None)
  Receive Date: 20120604
  Receipt Date: 20120529
  Transmission Date: 20120825
  Serious: No
  Sender: FDA-Public Use
  Company Number: US-PFIZER INC-2012129690

PATIENT
  Age: 56 Year
  Sex: Male

DRUGS (1)
  1. EMBEDA [Suspect]
     Indication: PAIN
     Dosage: UNK

REACTIONS (1)
  - PRURITUS [None]
